FAERS Safety Report 5006451-9 (Version None)
Quarter: 2006Q2

REPORT INFORMATION
  Report Type: 
  Country: None (occurrence: None)
  Receive Date: 20060516
  Receipt Date: 20060502
  Transmission Date: 20061013
  Serious: Yes (Hospitalization, Disabling)
  Sender: FDA-Public Use
  Company Number: 2006-142196-NL

PATIENT
  Age: 36 Year
  Sex: Male

DRUGS (5)
  1. MIRTAZAPINE [Suspect]
     Indication: MIGRAINE
     Dosage: 15 MG ONCE ORAL
     Route: 048
     Dates: start: 20060406, end: 20060406
  2. MESALAZINE [Concomitant]
  3. ACETAMINOPHEN W/ CODEINE [Concomitant]
  4. IBUPROFEN [Concomitant]
  5. AMITRIPTYLINE HCL [Concomitant]

REACTIONS (2)
  - ATRIAL FIBRILLATION [None]
  - SYNCOPE [None]
